FAERS Safety Report 24940292 (Version 1)
Quarter: 2025Q1

REPORT INFORMATION
  Report Type: Spontaneous
  Country: US (occurrence: US)
  Receive Date: 20250207
  Receipt Date: 20250207
  Transmission Date: 20250409
  Serious: Yes (Other)
  Sender: GLAXOSMITHKLINE
  Company Number: US-GLAXOSMITHKLINE INC-US2025013297

PATIENT

DRUGS (1)
  1. NUCALA [Suspect]
     Active Substance: MEPOLIZUMAB
     Indication: Product used for unknown indication

REACTIONS (3)
  - Pneumonia [Recovering/Resolving]
  - Respiratory syncytial virus bronchiolitis [Unknown]
  - Influenza [Unknown]

NARRATIVE: CASE EVENT DATE: 20250101
